FAERS Safety Report 6751838-7 (Version None)
Quarter: 2010Q2

REPORT INFORMATION
  Report Type: 
  Country: None (occurrence: None)
  Receive Date: 20100602
  Receipt Date: 20100602
  Transmission Date: 20101027
  Serious: Yes (Life-Threatening, Hospitalization)
  Sender: FDA-Public Use
  Company Number: None

PATIENT
  Age: 7 Year
  Sex: Male
  Weight: 27.3 kg

DRUGS (2)
  1. CHILDREN'S MOTRIN [Suspect]
     Indication: PYREXIA
     Dosage: 2 1/2 TSP EVERY 6HOURS BY MOUTH
     Route: 048
     Dates: start: 20100214, end: 20100217
  2. CHILDREN'S TYLENOL 160MG/5ML MCNEIL FORT WASHINGTON, PA [Suspect]
     Indication: PYREXIA
     Dosage: 2 1/2 TSP EVERY 6 HOURS BY MOUTH
     Route: 048
     Dates: start: 20100214, end: 20100217

REACTIONS (7)
  - ASTHMA [None]
  - DISEASE RECURRENCE [None]
  - INFLUENZA SEROLOGY POSITIVE [None]
  - PNEUMONIA BACTERIAL [None]
  - PRODUCT QUALITY ISSUE [None]
  - RESPIRATORY DISORDER [None]
  - TRANSMISSION OF AN INFECTIOUS AGENT VIA A MEDICINAL PRODUCT [None]
